FAERS Safety Report 24807617 (Version 1)
Quarter: 2025Q1

REPORT INFORMATION
  Report Type: Spontaneous
  Country: JP (occurrence: JP)
  Receive Date: 20250105
  Receipt Date: 20250105
  Transmission Date: 20250408
  Serious: Yes (Death)
  Sender: PRINSTON PHARMACEUTICAL
  Company Number: JP-PRINSTON PHARMACEUTICAL INC.-2024PRN00469

PATIENT
  Age: 70 Year
  Sex: Male

DRUGS (6)
  1. BISOPROLOL FUMARATE [Suspect]
     Active Substance: BISOPROLOL FUMARATE
     Indication: Hypertension
  2. BISOPROLOL FUMARATE [Suspect]
     Active Substance: BISOPROLOL FUMARATE
  3. NIFEDIPINE [Concomitant]
     Active Substance: NIFEDIPINE
  4. TORSEMIDE [Concomitant]
     Active Substance: TORSEMIDE
  5. SACUBITRIL\VALSARTAN [Concomitant]
     Active Substance: SACUBITRIL\VALSARTAN
  6. DABIGATRAN [Concomitant]
     Active Substance: DABIGATRAN

REACTIONS (1)
  - Phospholipidosis [Fatal]
